FAERS Safety Report 18823128 (Version 1)
Quarter: 2021Q1

REPORT INFORMATION
  Report Type: Report from Study
  Country: CA (occurrence: CA)
  Receive Date: 20210201
  Receipt Date: 20210201
  Transmission Date: 20210419
  Serious: Yes (Other)
  Sender: FDA-Public Use
  Company Number: CA-PFIZER INC-2021080077

PATIENT
  Sex: Female

DRUGS (2)
  1. METHOTREXATE SODIUM. [Suspect]
     Active Substance: METHOTREXATE SODIUM
     Route: 065
  2. CICLOSPORIN [Suspect]
     Active Substance: CYCLOSPORINE
     Route: 065

REACTIONS (7)
  - Psoriatic arthropathy [Unknown]
  - Gingival pain [Unknown]
  - Arthralgia [Unknown]
  - Joint stiffness [Unknown]
  - Treatment failure [Unknown]
  - Drug intolerance [Unknown]
  - Nail dystrophy [Unknown]
